FAERS Safety Report 10516366 (Version 2)
Quarter: 2016Q2

REPORT INFORMATION
  Report Type: Spontaneous
  Country: FR (occurrence: US)
  Receive Date: 20141014
  Receipt Date: 20160504
  Transmission Date: 20160815
  Serious: Yes (Other)
  Sender: FDA-Public Use
  Company Number: FR-MYLANLABS-2014M1006993

PATIENT

DRUGS (11)
  1. OMEPRAZOLE. [Concomitant]
     Active Substance: OMEPRAZOLE
     Dosage: UNK
  2. MERCAPTAMINE [Suspect]
     Active Substance: CYSTEAMINE
     Dosage: 25 MG, QD
  3. VITAMIN E                          /00110501/ [Concomitant]
     Active Substance: TOCOPHEROL
     Dosage: UNK
  4. MERCAPTAMINE [Suspect]
     Active Substance: CYSTEAMINE
     Dosage: 100 MG, QD
     Route: 048
  5. MERCAPTAMINE [Suspect]
     Active Substance: CYSTEAMINE
     Dosage: 600 MG, QD
     Route: 048
  6. MERCAPTAMINE [Suspect]
     Active Substance: CYSTEAMINE
     Dosage: 32 MG/KG, QD
  7. ESOMEPRAZOLE [Concomitant]
     Active Substance: ESOMEPRAZOLE
     Dosage: UNK
  8. MERCAPTAMINE [Suspect]
     Active Substance: CYSTEAMINE
     Dosage: 40 MG/KG, QD
  9. MERCAPTAMINE [Suspect]
     Active Substance: CYSTEAMINE
     Indication: CYSTINOSIS
     Dosage: UNK
  10. MERCAPTAMINE [Suspect]
     Active Substance: CYSTEAMINE
     Dosage: 20 MG/KG, QD
     Route: 048
  11. MERCAPTAMINE [Suspect]
     Active Substance: CYSTEAMINE
     Dosage: 30 MG/KG, QD

REACTIONS (13)
  - Drug intolerance [Unknown]
  - Nodule [Unknown]
  - Erosive duodenitis [Recovered/Resolved]
  - Incorrect route of drug administration [Unknown]
  - Vomiting [Unknown]
  - Transaminases increased [Unknown]
  - Blood gastrin increased [Not Recovered/Not Resolved]
  - Endoscopy upper gastrointestinal tract abnormal [Unknown]
  - Decreased appetite [Unknown]
  - Gastrointestinal disorder [Unknown]
  - Treatment noncompliance [Recovered/Resolved]
  - Abdominal pain [Unknown]
  - Biopsy stomach abnormal [Not Recovered/Not Resolved]
